FAERS Safety Report 10228076 (Version 1)
Quarter: 2014Q2

REPORT INFORMATION
  Report Type: Spontaneous
  Country: CA (occurrence: None)
  Receive Date: 20140609
  Receipt Date: 20140609
  Transmission Date: 20141212
  Serious: Yes (Life-Threatening, Other)
  Sender: FDA-Public Use
  Company Number: None

PATIENT
  Age: 47 Year
  Sex: Female
  Weight: 52.62 kg

DRUGS (1)
  1. BUSCOPAN [Suspect]
     Indication: PRODUCT USED FOR UNKNOWN INDICATION
     Dosage: 2 PER 6 HOURS, PER 6 HOURS, TAKEN BY MOUTH
     Route: 048
     Dates: start: 20140601, end: 20140601

REACTIONS (4)
  - Palpitations [None]
  - Loss of consciousness [None]
  - Pain [None]
  - Unevaluable event [None]
